FAERS Safety Report 5152734-1 (Version None)
Quarter: 2006Q4

REPORT INFORMATION
  Report Type: 
  Country: None (occurrence: None)
  Receive Date: 20061116
  Receipt Date: 20061020
  Transmission Date: 20070319
  Serious: Yes (Hospitalization)
  Sender: FDA-Public Use
  Company Number: DE-ABBOTT-06P-163-0347726-00

PATIENT
  Sex: Male

DRUGS (8)
  1. VALPROIC ACID [Suspect]
     Indication: DRUG USE FOR UNKNOWN INDICATION
     Route: 048
     Dates: start: 20040101
  2. CARBAMAZEPINE [Interacting]
     Indication: DRUG USE FOR UNKNOWN INDICATION
     Route: 048
     Dates: start: 20040101, end: 20060911
  3. CARBAMAZEPINE [Interacting]
     Route: 048
     Dates: start: 20060912, end: 20060916
  4. CARBAMAZEPINE [Interacting]
     Route: 048
     Dates: start: 20060917
  5. ZONISAMIDE [Interacting]
     Indication: EPILEPSY
     Route: 048
     Dates: start: 20060830, end: 20060911
  6. ZONISAMIDE [Interacting]
     Route: 048
     Dates: start: 20060823, end: 20060829
  7. ZONISAMIDE [Interacting]
     Route: 048
     Dates: start: 20060920, end: 20060920
  8. ZONISAMIDE [Interacting]
     Route: 048
     Dates: start: 20060921

REACTIONS (4)
  - CEREBELLAR SYNDROME [None]
  - DRUG INTERACTION [None]
  - DRUG TOXICITY [None]
  - HEPATIC STEATOSIS [None]
